FAERS Safety Report 8326812-X (Version None)
Quarter: 2012Q2

REPORT INFORMATION
  Report Type: 
  Country: None (occurrence: None)
  Receive Date: 20120430
  Receipt Date: 20120426
  Transmission Date: 20120825
  Serious: Yes (Other)
  Sender: FDA-Public Use
  Company Number: ADR-2011-11439

PATIENT
  Age: 67 Year
  Sex: Female

DRUGS (2)
  1. LIORESAL [Suspect]
     Indication: MUSCLE SPASTICITY
     Dosage: 50 MCG/DAY
  2. LIORESAL [Suspect]
     Indication: MULTIPLE SCLEROSIS
     Dosage: 50 MCG/DAY

REACTIONS (5)
  - IMPLANT SITE SWELLING [None]
  - MALAISE [None]
  - INJURY [None]
  - DEVICE INVERSION [None]
  - MEDICAL DEVICE DISCOMFORT [None]
